FAERS Safety Report 11069926 (Version 1)
Quarter: 2015Q2

REPORT INFORMATION
  Report Type: Report from Study
  Country: FR (occurrence: FR)
  Receive Date: 20150427
  Receipt Date: 20150427
  Transmission Date: 20150821
  Serious: Yes (Hospitalization, Other)
  Sender: FDA-Public Use
  Company Number: FR-ROCHE-1164290

PATIENT
  Age: 85 Year
  Sex: Male

DRUGS (8)
  1. RITUXIMAB [Suspect]
     Active Substance: RITUXIMAB
     Route: 041
     Dates: start: 20090509
  2. RITUXIMAB [Suspect]
     Active Substance: RITUXIMAB
     Route: 041
     Dates: start: 20090617
  3. RITUXIMAB [Suspect]
     Active Substance: RITUXIMAB
     Route: 041
     Dates: end: 20101014
  4. CORTANCYL [Concomitant]
     Active Substance: PREDNISONE
     Route: 065
  5. RITUXIMAB [Suspect]
     Active Substance: RITUXIMAB
     Route: 042
     Dates: end: 20101028
  6. RITUXIMAB [Suspect]
     Active Substance: RITUXIMAB
     Dosage: D 15
     Route: 041
     Dates: start: 20080916
  7. CORTANCYL [Concomitant]
     Active Substance: PREDNISONE
     Route: 065
  8. RITUXIMAB [Suspect]
     Active Substance: RITUXIMAB
     Indication: RHEUMATOID ARTHRITIS
     Route: 041
     Dates: start: 20080902

REACTIONS (6)
  - Pelvic fracture [Unknown]
  - Urinary tract infection [Recovered/Resolved]
  - Acarodermatitis [Unknown]
  - Haemoptysis [Unknown]
  - Bronchopneumonia [Recovered/Resolved]
  - Erysipelas [Not Recovered/Not Resolved]

NARRATIVE: CASE EVENT DATE: 20090602
